FAERS Safety Report 5454580-8 (Version None)
Quarter: 2007Q3

REPORT INFORMATION
  Report Type: 
  Country: None (occurrence: None)
  Receive Date: 20070917
  Receipt Date: 20060921
  Transmission Date: 20080115
  Serious: No
  Sender: FDA-Public Use
  Company Number: US-ASTRAZENECA-2006UW18504

PATIENT
  Age: 48 Year
  Sex: Female
  Weight: 136.1 kg

DRUGS (7)
  1. SEROQUEL [Suspect]
     Indication: BIPOLAR DISORDER
     Route: 048
     Dates: start: 20060801
  2. SEROQUEL [Suspect]
     Indication: PANIC ATTACK
     Route: 048
     Dates: start: 20060801
  3. SEROQUEL [Suspect]
     Route: 048
     Dates: start: 20060801
  4. SEROQUEL [Suspect]
     Route: 048
     Dates: start: 20060801
  5. MOBIC [Concomitant]
  6. ZOLOFT [Concomitant]
  7. KLONOPIN [Concomitant]

REACTIONS (3)
  - DIZZINESS [None]
  - HEADACHE [None]
  - MEMORY IMPAIRMENT [None]
